FAERS Safety Report 5392052-X (Version None)
Quarter: 2007Q3

REPORT INFORMATION
  Report Type: 
  Country: None (occurrence: None)
  Receive Date: 20070720
  Receipt Date: 20070716
  Transmission Date: 20080115
  Serious: Yes (Death, Hospitalization)
  Sender: FDA-Public Use
  Company Number: AU-NOVOPROD-265530

PATIENT
  Age: 65 Year
  Sex: Female
  Weight: 85 kg

DRUGS (5)
  1. NOVOSEVEN [Suspect]
     Indication: HAEMORRHAGE
     Dosage: 7.2 MG, UNK
     Route: 042
     Dates: start: 20061120
  2. ASPIRIN [Concomitant]
     Dates: start: 20061117
  3. HEPARIN [Concomitant]
     Dates: start: 20061119
  4. GELOFUSINE                         /00203801/ [Concomitant]
  5. PROTAMINE SULFATE [Concomitant]

REACTIONS (4)
  - BRADYCARDIA [None]
  - JAUNDICE ACHOLURIC [None]
  - MULTI-ORGAN FAILURE [None]
  - SEPSIS [None]
